FAERS Safety Report 5272439-6 (Version None)
Quarter: 2007Q1

REPORT INFORMATION
  Report Type: 
  Country: None (occurrence: None)
  Receive Date: 20061214
  Receipt Date: 20060912
  Transmission Date: 20070707
  Serious: Yes (Hospitalization)
  Sender: FDA-Public Use
  Company Number: 2006077497

PATIENT
  Age: 43 Year
  Sex: Female
  Weight: 83.0083 kg

DRUGS (1)
  1. BEXTRA [Suspect]
     Indication: PAIN
     Dosage: 40 MG (20 MG, 2 IN 1 D), UNKNOWN
     Dates: start: 20020315

REACTIONS (1)
  - MYOCARDIAL INFARCTION [None]
